FAERS Safety Report 16942514 (Version 2)
Quarter: 2022Q1

REPORT INFORMATION
  Report Type: Spontaneous
  Country: US (occurrence: US)
  Receive Date: 20191021
  Receipt Date: 20220205
  Transmission Date: 20220423
  Serious: No
  Sender: FDA-Public Use
  Company Number: US-BIOGEN-2019BI00724989

PATIENT
  Sex: Female

DRUGS (1)
  1. TECFIDERA [Suspect]
     Active Substance: DIMETHYL FUMARATE
     Indication: Multiple sclerosis
     Route: 065

REACTIONS (4)
  - Headache [Unknown]
  - Muscle spasms [Recovered/Resolved]
  - Flatulence [Recovered/Resolved]
  - Hot flush [Recovered/Resolved]
